FAERS Safety Report 10234798 (Version 1)
Quarter: 2014Q2

REPORT INFORMATION
  Report Type: Spontaneous
  Country: US (occurrence: US)
  Receive Date: 20140613
  Receipt Date: 20140613
  Transmission Date: 20141212
  Serious: No
  Sender: FDA-Public Use
  Company Number: US-ASTRAZENECA-2014SE38958

PATIENT
  Age: 90 Year
  Sex: Male

DRUGS (4)
  1. PULMICORT RESPULES [Suspect]
     Indication: BRONCHITIS
     Route: 055
  2. PULMICORT RESPULES [Suspect]
     Indication: DYSPNOEA
     Route: 055
  3. PULMICORT RESPULES [Suspect]
     Indication: EMPHYSEMA
     Route: 055
  4. COMBINATION OF ALBUTEROL SULFATE AND IPATROPIUM BROMIDE [Concomitant]
     Dosage: NOT REPORTED NR
     Route: 050

REACTIONS (2)
  - Secretion discharge [Unknown]
  - Off label use [Unknown]
